FAERS Safety Report 5180937-9 (Version None)
Quarter: 2006Q4

REPORT INFORMATION
  Report Type: 
  Country: None (occurrence: None)
  Receive Date: 20061218
  Receipt Date: 20061218
  Transmission Date: 20070319
  Serious: Yes (Life-Threatening, Hospitalization)
  Sender: FDA-Public Use
  Company Number: None

PATIENT
  Age: 23 Year
  Sex: Female
  Weight: 52.6173 kg

DRUGS (4)
  1. IRON DEXTRAN [Suspect]
     Indication: ANAEMIA
     Dosage: 25MG   ONCE    IV
     Route: 042
     Dates: start: 20060627, end: 20060627
  2. DIPHENHYDRAMINE     50MG/ML [Suspect]
     Indication: PREMEDICATION
     Dosage: 25MG   ONCE    IV
     Route: 042
     Dates: start: 20060627, end: 20060627
  3. ORAL CONTRACEPTIVE [Concomitant]
  4. EXCEDRIN (MIGRAINE) [Concomitant]

REACTIONS (6)
  - BACK PAIN [None]
  - CHEST PAIN [None]
  - CHILLS [None]
  - INFUSION RELATED REACTION [None]
  - LOSS OF CONSCIOUSNESS [None]
  - SYNCOPE [None]
